FAERS Safety Report 22163492 (Version 1)
Quarter: 2023Q2

REPORT INFORMATION
  Report Type: Spontaneous
  Country: AT (occurrence: AT)
  Receive Date: 20230401
  Receipt Date: 20230401
  Transmission Date: 20230721
  Serious: Yes (Hospitalization, Other)
  Sender: FDA-Public Use
  Company Number: AT-EMA-DD-20230306-7182781-115536

PATIENT
  Age: 20 Year
  Sex: Female

DRUGS (26)
  1. ARIPIPRAZOLE [Suspect]
     Active Substance: ARIPIPRAZOLE
     Indication: Borderline personality disorder
  2. BUPROPION HYDROCHLORIDE [Suspect]
     Active Substance: BUPROPION HYDROCHLORIDE
     Indication: Major depression
     Dosage: 150 MG, 1D(EXTENDED RELEASE)
  3. DULOXETINE [Suspect]
     Active Substance: DULOXETINE
     Indication: Borderline personality disorder
     Dosage: 60-180 MG
  4. ESCITALOPRAM [Suspect]
     Active Substance: ESCITALOPRAM OXALATE
     Indication: Major depression
     Dosage: 30 MG, QD(RELATIVELY HIGH DOSE OF ESCITALOPRAM)
  5. QUETIAPINE FUMARATE [Suspect]
     Active Substance: QUETIAPINE FUMARATE
     Indication: Major depression
  6. TOPIRAMATE [Suspect]
     Active Substance: TOPIRAMATE
     Indication: Major depression
  7. CLONAZEPAM [Suspect]
     Active Substance: CLONAZEPAM
     Indication: Borderline personality disorder
  8. TRAZODONE [Suspect]
     Active Substance: TRAZODONE HYDROCHLORIDE
     Indication: Major depression
     Dosage: 150 MG, 1D(RETARD PREPARATION EVERY DAY IN THE EVENING)
  9. RISPERIDONE [Suspect]
     Active Substance: RISPERIDONE
     Indication: Borderline personality disorder
  10. CLOMIPRAMINE [Suspect]
     Active Substance: CLOMIPRAMINE
     Indication: Borderline personality disorder
     Dosage: UP TO 225 MG PER ORAL EVERY DAY
  11. ZOLPIDEM [Suspect]
     Active Substance: ZOLPIDEM TARTRATE
     Indication: Hallucinations, mixed
     Dosage: 10 MG WAS ADMINISTERED ONLY ONCE
  12. LORAZEPAM [Suspect]
     Active Substance: LORAZEPAM
     Indication: Borderline personality disorder
  13. ESKETAMINE HYDROCHLORIDE [Suspect]
     Active Substance: ESKETAMINE HYDROCHLORIDE
     Indication: Depression
     Dosage: ESKETAMINE AS RAPID-ACTING AUGMENTATION THERAPY
     Route: 042
  14. LITHIUM [Suspect]
     Active Substance: LITHIUM
     Indication: Major depression
  15. SERTRALINE [Concomitant]
     Active Substance: SERTRALINE HYDROCHLORIDE
     Indication: Major depression
  16. VENLAFAXINE [Concomitant]
     Active Substance: VENLAFAXINE HYDROCHLORIDE
  17. FLUOXETINE [Concomitant]
     Active Substance: FLUOXETINE HYDROCHLORIDE
  18. DULOXETINE [Suspect]
     Active Substance: DULOXETINE
     Indication: Major depression
     Dosage: 60-180 MG
  19. ESKETAMINE HYDROCHLORIDE [Suspect]
     Active Substance: ESKETAMINE HYDROCHLORIDE
     Indication: Borderline personality disorder
     Dosage: D FIVE IV INFUSIONS OF ESKETAMINE OVER 40-60 MIN DURING A TIME PERIOD OF TWO
     Route: 042
  20. LORAZEPAM [Suspect]
     Active Substance: LORAZEPAM
     Indication: Agitation
  21. CLONAZEPAM [Suspect]
     Active Substance: CLONAZEPAM
     Indication: Anxiety
  22. LORAZEPAM [Suspect]
     Active Substance: LORAZEPAM
     Indication: Anxiety
  23. ZOLPIDEM [Suspect]
     Active Substance: ZOLPIDEM TARTRATE
     Indication: Major depression
     Dosage: 10 MG, 1D
  24. ESKETAMINE HYDROCHLORIDE [Suspect]
     Active Substance: ESKETAMINE HYDROCHLORIDE
     Dosage: FIVE ESKETAMINE 25 OR 50 MG OVER 40-60 MIN
  25. BUPROPION HYDROCHLORIDE [Suspect]
     Active Substance: BUPROPION HYDROCHLORIDE
     Indication: Borderline personality disorder
     Dosage: 150 MG (EXTENDED RELEASE)
  26. ESKETAMINE HYDROCHLORIDE [Suspect]
     Active Substance: ESKETAMINE HYDROCHLORIDE
     Indication: Major depression
     Dosage: OVER 40 TO 60 MINUTES (IN TOTAL, SHE RECEIVED 5 ESKETAMINE 25 OR 50 MG?ADMINISTRATIONS

REACTIONS (8)
  - Suicide attempt [Unknown]
  - Suicidal behaviour [Recovered/Resolved]
  - Tremor [Unknown]
  - Vertigo [Unknown]
  - Suicidal ideation [Recovering/Resolving]
  - Abnormal behaviour [Recovering/Resolving]
  - Toxicity to various agents [Unknown]
  - Agitation [Unknown]
